FAERS Safety Report 4375366-1 (Version None)
Quarter: 2004Q2

REPORT INFORMATION
  Report Type: 
  Country: None (occurrence: None)
  Receive Date: 20040610
  Receipt Date: 20040526
  Transmission Date: 20050107
  Serious: Yes (Hospitalization, Other)
  Sender: FDA-Public Use
  Company Number: DE-JNJFOC-20040601645

PATIENT
  Sex: Male

DRUGS (6)
  1. REOPRO [Suspect]
     Dosage: 0.125 UG/KG/MIN FOR 12 HOURS
  2. REOPRO [Suspect]
     Indication: ACUTE MYOCARDIAL INFARCTION
  3. RETEVASE [Suspect]
     Indication: ACUTE MYOCARDIAL INFARCTION
  4. ASPIRIN [Concomitant]
  5. HEPARIN [Concomitant]
  6. PLAVIX [Concomitant]

REACTIONS (3)
  - MYOCARDIAL INFARCTION [None]
  - POST PROCEDURAL COMPLICATION [None]
  - STENT OCCLUSION [None]
